FAERS Safety Report 9250389 (Version 1)
Quarter: 2013Q1

REPORT INFORMATION
  Report Type: Spontaneous
  Country: US (occurrence: None)
  Receive Date: 20130305
  Receipt Date: 20130305
  Transmission Date: 20140127
  Serious: Yes (Other)
  Sender: FDA-Public Use
  Company Number: 163-21880-12061003

PATIENT
  Age: 80 Year
  Sex: Female

DRUGS (9)
  1. REVLIMID [Suspect]
     Indication: PLASMA CELL MYELOMA
     Dosage: 10 MG, 21, PO
     Dates: start: 20081226
  2. AMLODIPINE BESY-BENAZEPRIL HCL (AMLODIPINE BESYLATE W/BENAZEPRIL HYDROCHLOR.) [Concomitant]
  3. BISOPROLOL FUMARATE (BISOPROLOL FUMARATE) [Concomitant]
  4. NEXIUM [Concomitant]
  5. MIRTAZAPINE (MIRTAZAPINE) [Concomitant]
  6. VITAMIN B12 (CYANOCOBALAMIN) [Concomitant]
  7. MULTIVITAMIN/MINERALS (MULTIVITAMIN AND MINERAL) [Concomitant]
  8. DEXAMETHASONE (DEXAMETHASONE) [Concomitant]
  9. CALCIUM +D (OS-CAL) [Concomitant]

REACTIONS (2)
  - Dehydration [None]
  - Hypertension [None]
